FAERS Safety Report 8524358-7 (Version None)
Quarter: 2012Q3

REPORT INFORMATION
  Report Type: 
  Country: None (occurrence: None)
  Receive Date: 20120720
  Receipt Date: 20120713
  Transmission Date: 20120928
  Serious: Yes (Other)
  Sender: FDA-Public Use
  Company Number: US-ABBOTT-12P-163-0956001-00

PATIENT
  Sex: Female

DRUGS (2)
  1. UNKNOWN ANTI-HYPERTENSION MEDICATIONS [Concomitant]
     Indication: PSORIASIS
  2. HUMIRA [Suspect]
     Indication: PSORIATIC ARTHROPATHY
     Dates: start: 20080101

REACTIONS (2)
  - BLADDER CANCER [None]
  - WEIGHT DECREASED [None]
